FAERS Safety Report 7387101-3 (Version None)
Quarter: 2011Q1

REPORT INFORMATION
  Report Type: 
  Country: None (occurrence: None)
  Receive Date: 20110331
  Receipt Date: 20110322
  Transmission Date: 20110831
  Serious: Yes (Hospitalization)
  Sender: FDA-Public Use
  Company Number: A0757776A

PATIENT
  Age: 66 Year
  Sex: Male
  Weight: 89.1 kg

DRUGS (8)
  1. METOPROLOL [Concomitant]
  2. AVANDIA [Suspect]
     Dosage: 4MG PER DAY
     Route: 048
     Dates: start: 20010406, end: 20060113
  3. TOPROL-XL [Concomitant]
  4. ACTOS [Concomitant]
  5. NITROGLYCERIN [Concomitant]
  6. DIABETA [Concomitant]
  7. GLUCOTROL [Concomitant]
  8. ZOCOR [Concomitant]

REACTIONS (2)
  - CARDIAC FAILURE CONGESTIVE [None]
  - MYOCARDIAL INFARCTION [None]
